FAERS Safety Report 4397593-X (Version None)
Quarter: 2004Q3

REPORT INFORMATION
  Report Type: 
  Country: None (occurrence: None)
  Receive Date: 20040708
  Receipt Date: 20040621
  Transmission Date: 20050211
  Serious: Yes (Life-Threatening, Hospitalization)
  Sender: FDA-Public Use
  Company Number: STA-AE-04-MTX-253

PATIENT
  Age: 73 Year
  Sex: Female

DRUGS (7)
  1. RHEUMATREX [Suspect]
     Indication: RHEUMATOID ARTHRITIS
     Dosage: 4 MG 1X PER 1WK, ORAL
     Route: 048
     Dates: start: 20040411, end: 20040410
  2. RHEUMATREX [Suspect]
     Indication: RHEUMATOID ARTHRITIS
     Dosage: 6 MG 1X PER 1WK, ORAL
     Route: 048
     Dates: start: 20040411, end: 20040525
  3. FOLIC ACID [Concomitant]
  4. PREDNISOLONE [Concomitant]
  5. LOXOPROFEN [Concomitant]
  6. SELBEX(TEPRENONE0 [Concomitant]
  7. FOSAMAX [Concomitant]

REACTIONS (4)
  - PNEUMOCYSTIS CARINII PNEUMONIA [None]
  - PNEUMONIA CYTOMEGALOVIRAL [None]
  - PULMONARY MYCOSIS [None]
  - RESPIRATORY FAILURE [None]
